FAERS Safety Report 10388096 (Version 2)
Quarter: 2014Q3

REPORT INFORMATION
  Report Type: Report from Study
  Country: BR (occurrence: BR)
  Receive Date: 20140815
  Receipt Date: 20140911
  Transmission Date: 20150326
  Serious: Yes (Other)
  Sender: FDA-Public Use
  Company Number: PHHY2014BR101760

PATIENT
  Sex: Male
  Weight: 82 kg

DRUGS (2)
  1. DIOVAN HCT [Suspect]
     Active Substance: HYDROCHLOROTHIAZIDE\VALSARTAN
     Indication: HYPERTENSION
     Dosage: 1 DF A DAY
     Route: 048
  2. DIOVAN [Suspect]
     Active Substance: VALSARTAN
     Dosage: 160 MG, UNK

REACTIONS (5)
  - Cardiovascular disorder [Unknown]
  - Venous occlusion [Unknown]
  - Cerebrovascular accident [Unknown]
  - Diabetes mellitus [Not Recovered/Not Resolved]
  - Carotid artery occlusion [Unknown]
